FAERS Safety Report 18024102 (Version 1)
Quarter: 2020Q3

REPORT INFORMATION
  Report Type: Spontaneous
  Country: US (occurrence: US)
  Receive Date: 20200714
  Receipt Date: 20200714
  Transmission Date: 20201103
  Serious: Yes (Hospitalization)
  Sender: FDA-Public Use
  Company Number: None

PATIENT
  Age: 80 Year
  Sex: Female

DRUGS (28)
  1. METOPROL SUC [Concomitant]
  2. ONDANSETRON [Concomitant]
     Active Substance: ONDANSETRON
  3. AMOX/K CLAV [Concomitant]
     Active Substance: AMOXICILLIN\CLAVULANATE POTASSIUM
  4. CARVEDILOL. [Concomitant]
     Active Substance: CARVEDILOL
  5. CELECOXIB. [Concomitant]
     Active Substance: CELECOXIB
  6. ENTECAVIR. [Concomitant]
     Active Substance: ENTECAVIR
  7. METOPROL TAR [Concomitant]
  8. BACLOFEN. [Concomitant]
     Active Substance: BACLOFEN
  9. DILTIAZEM. [Concomitant]
     Active Substance: DILTIAZEM
  10. GABAPENTIN. [Concomitant]
     Active Substance: GABAPENTIN
  11. CYCLOBENZAPR [Concomitant]
     Active Substance: CYCLOBENZAPRINE
  12. DIGOXIN. [Concomitant]
     Active Substance: DIGOXIN
  13. ELIQUIS [Concomitant]
     Active Substance: APIXABAN
  14. IPRATROPIUM [Concomitant]
     Active Substance: IPRATROPIUM
  15. PRAMIPEXOLE. [Concomitant]
     Active Substance: PRAMIPEXOLE
  16. ESBRIET [Suspect]
     Active Substance: PIRFENIDONE
     Indication: IDIOPATHIC PULMONARY FIBROSIS
     Route: 048
     Dates: start: 20200110
  17. ALPRAZOLAM. [Concomitant]
     Active Substance: ALPRAZOLAM
  18. METHOCARBAM [Concomitant]
     Active Substance: METHOCARBAMOL
  19. OXYCODONE AND ACETAMINOPHEN [Concomitant]
     Active Substance: ACETAMINOPHEN\OXYCODONE HYDROCHLORIDE
  20. PREDNISONE. [Concomitant]
     Active Substance: PREDNISONE
  21. AMANTADINE. [Concomitant]
     Active Substance: AMANTADINE HYDROCHLORIDE
  22. ESOMEPRA MAG [Concomitant]
  23. FUROSEMIDE. [Concomitant]
     Active Substance: FUROSEMIDE
  24. AMLODIPINE [Concomitant]
     Active Substance: AMLODIPINE BESYLATE
  25. DIGOX [Concomitant]
     Active Substance: DIGOXIN
  26. LEVOTHYROXIN [Concomitant]
     Active Substance: LEVOTHYROXINE
  27. MELATONIN [Concomitant]
     Active Substance: MELATONIN
  28. MIRTAZAPINE. [Concomitant]
     Active Substance: MIRTAZAPINE

REACTIONS (3)
  - Product dose omission issue [None]
  - Infection [None]
  - Unresponsive to stimuli [None]

NARRATIVE: CASE EVENT DATE: 20200706
